FAERS Safety Report 4452014-3 (Version None)
Quarter: 2004Q3

REPORT INFORMATION
  Report Type: 
  Country: None (occurrence: None)
  Receive Date: 20040916
  Receipt Date: 20040907
  Transmission Date: 20050211
  Serious: Yes (Other)
  Sender: FDA-Public Use
  Company Number: 002661

PATIENT
  Sex: Female

DRUGS (7)
  1. MEDROXYPROGESTERONE ACETATE [Suspect]
     Dosage: SEE IMAGE
     Dates: start: 19900530, end: 19930801
  2. MEDROXYPROGESTERONE ACETATE [Suspect]
     Dosage: SEE IMAGE
     Dates: start: 19940804, end: 19980101
  3. PREMARIN [Suspect]
     Dosage: SEE IMAGE
     Dates: start: 19990530, end: 19930801
  4. PREMARIN [Suspect]
     Dosage: SEE IMAGE
     Dates: start: 19940804, end: 19980101
  5. PROVERA [Suspect]
     Dosage: SEE IMAGE
     Dates: start: 19900530, end: 19930801
  6. PROVERA [Suspect]
     Dosage: SEE IMAGE
     Dates: start: 19940804, end: 19980101
  7. MEDROXYPROGESTERONE ACETATE [Suspect]
     Dates: start: 19980101, end: 20011201

REACTIONS (1)
  - BREAST CANCER FEMALE [None]
